FAERS Safety Report 21086293 (Version 2)
Quarter: 2022Q4

REPORT INFORMATION
  Report Type: Spontaneous
  Country: BR (occurrence: BR)
  Receive Date: 20220715
  Receipt Date: 20221024
  Transmission Date: 20230113
  Serious: Yes (Hospitalization, Other)
  Sender: FDA-Public Use
  Company Number: BR-NOVOPROD-936769

PATIENT
  Age: 64 Year
  Sex: Male
  Weight: 92 kg

DRUGS (8)
  1. XULTOPHY 100/3.6 [Suspect]
     Active Substance: INSULIN DEGLUDEC\LIRAGLUTIDE
     Dosage: GRADUAL INCREASE UNTILL 50 IU
  2. XULTOPHY 100/3.6 [Suspect]
     Active Substance: INSULIN DEGLUDEC\LIRAGLUTIDE
     Dosage: 50 IU, QD
     Dates: start: 202101
  3. XULTOPHY 100/3.6 [Suspect]
     Active Substance: INSULIN DEGLUDEC\LIRAGLUTIDE
     Indication: Diabetes mellitus
     Dosage: 16 IU, QD
  4. XULTOPHY 100/3.6 [Suspect]
     Active Substance: INSULIN DEGLUDEC\LIRAGLUTIDE
     Dosage: UNK
     Dates: start: 202107
  5. METFORMIN [Concomitant]
     Active Substance: METFORMIN HYDROCHLORIDE
     Dosage: 2 G
  6. PIOGLITAZONE [Concomitant]
     Active Substance: PIOGLITAZONE
     Dosage: 45 MG
  7. EMPAGLIFLOZIN [Concomitant]
     Active Substance: EMPAGLIFLOZIN
     Dosage: 25 MG
  8. GLICLAZIDE [Concomitant]
     Active Substance: GLICLAZIDE
     Dosage: 30 MG

REACTIONS (1)
  - Papillary thyroid cancer [Unknown]
